FAERS Safety Report 4494675-9 (Version None)
Quarter: 2004Q4

REPORT INFORMATION
  Report Type: 
  Country: None (occurrence: None)
  Receive Date: 20041103
  Receipt Date: 20041022
  Transmission Date: 20050328
  Serious: Yes (Hospitalization)
  Sender: FDA-Public Use
  Company Number: A-US2003-03043

PATIENT
  Age: 45 Year
  Sex: Male
  Weight: 87 kg

DRUGS (15)
  1. TRACLEER [Suspect]
     Indication: PULMONARY HYPERTENSION
     Dosage: 62.5 MG, BID, ORAL; 125 MG, BID, ORAL; 62.5 MG, BID, ORAL
     Route: 048
     Dates: end: 20030620
  2. TRACLEER [Suspect]
     Indication: PULMONARY HYPERTENSION
     Dosage: 62.5 MG, BID, ORAL; 125 MG, BID, ORAL; 62.5 MG, BID, ORAL
     Route: 048
     Dates: start: 20030620, end: 20040901
  3. TRACLEER [Suspect]
     Indication: PULMONARY HYPERTENSION
     Dosage: 62.5 MG, BID, ORAL; 125 MG, BID, ORAL; 62.5 MG, BID, ORAL
     Route: 048
     Dates: start: 20020301
  4. COUMADIN [Concomitant]
  5. DAPSONE [Concomitant]
  6. EPIVIR [Concomitant]
  7. ACYCLOVIR [Concomitant]
  8. KALETRA [Concomitant]
  9. VIREAD [Concomitant]
  10. DARVOCET-N (DEXTROPROPOXYPHENE NAPSILATE, PARACETAMOL) [Concomitant]
  11. ZOFRAN [Concomitant]
  12. ARANESP [Concomitant]
  13. CHEMOTHERAPY [Concomitant]
  14. AZITHROMYCIN [Concomitant]
  15. ... [Concomitant]

REACTIONS (8)
  - FATIGUE [None]
  - HEPATITIS C RNA POSITIVE [None]
  - HEPATITIS VIRAL [None]
  - HEPATOSPLENOMEGALY [None]
  - LYMPHADENOPATHY [None]
  - LYMPHOMA [None]
  - MALAISE [None]
  - PNEUMONIA [None]
